FAERS Safety Report 23570164 (Version 1)
Quarter: 2024Q1

REPORT INFORMATION
  Report Type: Spontaneous
  Country: CH (occurrence: CH)
  Receive Date: 20240227
  Receipt Date: 20240227
  Transmission Date: 20240410
  Serious: Yes (Other)
  Sender: FDA-Public Use
  Company Number: None

PATIENT
  Age: 29 Year
  Sex: Female

DRUGS (4)
  1. DIENOGEST\ETHINYL ESTRADIOL [Suspect]
     Active Substance: DIENOGEST\ETHINYL ESTRADIOL
     Route: 048
     Dates: start: 201903, end: 202008
  2. NUVARING [Suspect]
     Active Substance: ETHINYL ESTRADIOL\ETONOGESTREL
     Dosage: UNK
     Route: 067
     Dates: start: 20080101, end: 200807
  3. LEVONORGESTREL [Suspect]
     Active Substance: LEVONORGESTREL
     Dosage: 14?G/DAY
     Route: 015
     Dates: start: 202008, end: 202107
  4. COPPER [Suspect]
     Active Substance: COPPER
     Dosage: UNK
     Route: 015
     Dates: start: 202107

REACTIONS (1)
  - Lipoedema [Not Recovered/Not Resolved]

NARRATIVE: CASE EVENT DATE: 20200501
